FAERS Safety Report 5472501-9 (Version None)
Quarter: 2007Q3

REPORT INFORMATION
  Report Type: 
  Country: None (occurrence: None)
  Receive Date: 20070926
  Receipt Date: 20070917
  Transmission Date: 20080115
  Serious: Yes (Disabling)
  Sender: FDA-Public Use
  Company Number: 2007SP018722

PATIENT
  Sex: Male

DRUGS (3)
  1. MOMETASONE SP (MOMETASONE FUROATE (NASAL)) (MOMETASONE FUROATE) [Suspect]
     Indication: HYPERSENSITIVITY
     Dosage: 1 DF;NAS
     Route: 045
     Dates: start: 20070314
  2. OMEPRAZOLE (CON) [Concomitant]
  3. SERETIDE [Concomitant]

REACTIONS (3)
  - ARTHRALGIA [None]
  - DRY MOUTH [None]
  - HYPERSENSITIVITY [None]
